FAERS Safety Report 4832880-X (Version None)
Quarter: 2005Q4

REPORT INFORMATION
  Report Type: 
  Country: None (occurrence: None)
  Receive Date: 20051121
  Receipt Date: 20050606
  Transmission Date: 20060501
  Serious: Yes (Other)
  Sender: FDA-Public Use
  Company Number: FR-GLAXOSMITHKLINE-B0362570A

PATIENT
  Age: 35 Year
  Sex: Female

DRUGS (2)
  1. DEROXAT [Suspect]
     Indication: OBSESSIVE-COMPULSIVE DISORDER
     Dosage: 40MG PER DAY
     Route: 048
     Dates: start: 20031101
  2. XANAX [Concomitant]
     Route: 048

REACTIONS (5)
  - DRUG EXPOSURE DURING PREGNANCY [None]
  - GASTRIC HAEMORRHAGE [None]
  - NORMAL DELIVERY [None]
  - PREGNANCY [None]
  - UPPER GASTROINTESTINAL HAEMORRHAGE [None]
